FAERS Safety Report 7578759-4 (Version None)
Quarter: 2011Q2

REPORT INFORMATION
  Report Type: 
  Country: None (occurrence: None)
  Receive Date: 20110628
  Receipt Date: 20100730
  Transmission Date: 20111010
  Serious: Yes (Hospitalization)
  Sender: FDA-Public Use
  Company Number: US-PFIZER INC-2010096024

PATIENT
  Sex: Male

DRUGS (10)
  1. NAMENDA [Concomitant]
     Indication: VASCULAR DEMENTIA
     Dosage: UNK
     Route: 048
     Dates: start: 20030101
  2. ARICEPT [Concomitant]
     Indication: VASCULAR DEMENTIA
     Dosage: UNK
     Route: 048
     Dates: start: 20030101
  3. NORVASC [Concomitant]
     Indication: HYPERTENSION
     Dosage: UNK
     Route: 048
  4. DETROL LA [Suspect]
     Indication: URINARY INCONTINENCE
     Dosage: UNK
     Route: 048
     Dates: start: 20070101
  5. SPIRIVA [Suspect]
     Dosage: 18 MCG, 1X/DAY
     Dates: start: 20070101
  6. PAXIL [Concomitant]
     Indication: DEPRESSION
     Dosage: UNK
     Route: 048
  7. MULTI-VITAMINS [Concomitant]
     Indication: ROUTINE HEALTH MAINTENANCE
     Dosage: UNK
     Route: 048
  8. AGGRENOX [Concomitant]
     Indication: PROPHYLAXIS
     Dosage: UNK
     Route: 048
     Dates: start: 20030101
  9. SIMVASTATIN [Concomitant]
     Indication: PROPHYLAXIS
     Dosage: UNK
     Route: 048
     Dates: start: 20030101
  10. ACETYLSALICYLIC ACID [Concomitant]
     Indication: PROPHYLAXIS
     Dosage: UNK
     Route: 048
     Dates: start: 20030101

REACTIONS (2)
  - URINARY RETENTION [None]
  - ATRIAL FIBRILLATION [None]
